FAERS Safety Report 5121654-0 (Version None)
Quarter: 2006Q4

REPORT INFORMATION
  Report Type: 
  Country: None (occurrence: None)
  Receive Date: 20061006
  Receipt Date: 20060926
  Transmission Date: 20070319
  Serious: Yes (Other)
  Sender: FDA-Public Use
  Company Number: BR-JNJFOC-20060906555

PATIENT
  Age: 7 Year
  Sex: Male
  Weight: 29 kg

DRUGS (4)
  1. MOTILIUM [Suspect]
     Indication: STOMACH DISCOMFORT
     Route: 048
  2. MOTILIUM [Suspect]
     Indication: DYSPEPSIA
     Route: 048
  3. TYLENOL (CAPLET) [Suspect]
     Indication: NASOPHARYNGITIS
     Route: 048
  4. TYLENOL (CAPLET) [Suspect]
     Indication: VIRAL INFECTION
     Route: 048

REACTIONS (4)
  - AGITATION [None]
  - EXTRAPYRAMIDAL DISORDER [None]
  - MOOD ALTERED [None]
  - SLEEP DISORDER [None]
